FAERS Safety Report 7241810-5 (Version None)
Quarter: 2011Q1

REPORT INFORMATION
  Report Type: 
  Country: None (occurrence: None)
  Receive Date: 20110124
  Receipt Date: 20110117
  Transmission Date: 20110831
  Serious: Yes (Other)
  Sender: FDA-Public Use
  Company Number: US-ABBOTT-11P-163-0699519-00

PATIENT
  Age: 46 Year
  Sex: Female

DRUGS (12)
  1. CRESTOR [Concomitant]
     Indication: BLOOD CHOLESTEROL INCREASED
  2. LISINOPRIL [Concomitant]
     Indication: BLOOD PRESSURE
  3. LEFLUNOMIDE [Concomitant]
     Indication: ARTHRITIS
  4. FISH OIL [Concomitant]
     Indication: MEDICAL DIET
  5. NORVASC [Concomitant]
     Indication: HYPERTENSION
  6. FEXOFENADINE HCL [Concomitant]
     Indication: SINUS CONGESTION
  7. NEURONTIN [Concomitant]
     Indication: NEUROPATHY PERIPHERAL
  8. VITAMIN D [Concomitant]
     Indication: VITAMIN SUPPLEMENTATION
  9. SYNTHROID [Concomitant]
     Indication: HYPOTHYROIDISM
  10. TRIAZOLAM [Concomitant]
     Indication: INSOMNIA
  11. HUMIRA [Suspect]
     Indication: RHEUMATOID ARTHRITIS
     Dates: start: 20080501
  12. PERCOCET [Concomitant]
     Indication: PAIN
     Dosage: 5/325 AS NEEDED

REACTIONS (1)
  - INGROWING NAIL [None]
